FAERS Safety Report 19692193 (Version 1)
Quarter: 2021Q3

REPORT INFORMATION
  Report Type: Spontaneous
  Country: DE (occurrence: DE)
  Receive Date: 20210812
  Receipt Date: 20210812
  Transmission Date: 20211014
  Serious: Yes (Hospitalization, Other)
  Sender: FDA-Public Use
  Company Number: DE-SA-2021SA261708

PATIENT
  Age: 61 Year
  Sex: Male

DRUGS (6)
  1. CLOPIDOGREL BISULFATE. [Suspect]
     Active Substance: CLOPIDOGREL BISULFATE
     Dosage: 75 MG, 1?0?0?0, TABLETS
     Route: 048
  2. BISOPROLOL [Concomitant]
     Active Substance: BISOPROLOL
     Dosage: 2.5 MG, 0.5?0?0?0, TABLETS
     Route: 048
  3. TIOTROPIUM [Concomitant]
     Active Substance: TIOTROPIUM
     Dosage: 18G, 1?0?0?0, METERED DOSE INHALER
     Route: 055
  4. THIAMINE [THIAMINE HYDROCHLORIDE] [Concomitant]
     Dosage: 300 MG, 1?1?1?0, TABLETS
     Route: 048
  5. ATORVASTATIN [Concomitant]
     Active Substance: ATORVASTATIN
     Dosage: 10 MG, 0?0?1?0, TABLETS
     Route: 048
  6. OMEPRAZOLE. [Concomitant]
     Active Substance: OMEPRAZOLE
     Dosage: 40 MG, 1?0?0?0, TABLETS
     Route: 048

REACTIONS (3)
  - Abdominal pain lower [Unknown]
  - Fall [Unknown]
  - Haematochezia [Unknown]
